FAERS Safety Report 21603938 (Version 4)
Quarter: 2024Q2

REPORT INFORMATION
  Report Type: Report from Study
  Country: US (occurrence: US)
  Receive Date: 20221116
  Receipt Date: 20240503
  Transmission Date: 20240716
  Serious: Yes (Hospitalization, Other)
  Sender: FDA-Public Use
  Company Number: US-ABBVIE-4202619

PATIENT
  Age: 81 Year
  Sex: Male

DRUGS (4)
  1. IMBRUVICA [Suspect]
     Active Substance: IBRUTINIB
     Indication: Waldenstrom^s macroglobulinaemia
     Dosage: FORM STRENGTH: 140 MILLIGRAMS, LAST ADMIN DATE: 2022
     Route: 048
     Dates: start: 202206
  2. IMBRUVICA [Suspect]
     Active Substance: IBRUTINIB
     Indication: Waldenstrom^s macroglobulinaemia
     Dosage: FORM STRENGTH: 140 MILLIGRAMS
     Route: 048
     Dates: start: 20140719
  3. IMBRUVICA [Suspect]
     Active Substance: IBRUTINIB
     Indication: Waldenstrom^s macroglobulinaemia
     Dosage: FORM STRENGTH: 140 MILLIGRAMS, FIRST ADMIN DATE: 2022
     Route: 048
     Dates: end: 2023
  4. IMBRUVICA [Suspect]
     Active Substance: IBRUTINIB
     Indication: Waldenstrom^s macroglobulinaemia
     Dosage: FORM STRENGTH: 140 MILLIGRAMS, FIRST ADMIN DATE: 2023
     Route: 048

REACTIONS (11)
  - Knee arthroplasty [Unknown]
  - Knee arthroplasty [Unknown]
  - Accident [Unknown]
  - Joint range of motion decreased [Unknown]
  - Cardiac pacemaker insertion [Unknown]
  - Osteoarthritis [Unknown]
  - Arthritis [Unknown]
  - Condition aggravated [Unknown]
  - Procedural pain [Unknown]
  - Limb asymmetry [Unknown]
  - Back pain [Unknown]

NARRATIVE: CASE EVENT DATE: 20221031
